FAERS Safety Report 6212901-2 (Version None)
Quarter: 2009Q2

REPORT INFORMATION
  Report Type: 
  Country: None (occurrence: None)
  Receive Date: 20090603
  Receipt Date: 20090527
  Transmission Date: 20091009
  Serious: Yes (Other)
  Sender: FDA-Public Use
  Company Number: CH-ABBOTT-09P-151-0576222-00

PATIENT
  Age: 24 Year
  Sex: Male

DRUGS (2)
  1. CYCLOSPORINE [Suspect]
     Indication: CHOROIDITIS
     Dosage: NOT REPORTED
  2. PREDNISONE [Suspect]
     Indication: MALAISE
     Route: 048

REACTIONS (1)
  - EYE INFECTION TOXOPLASMAL [None]
